FAERS Safety Report 19923400 (Version 3)
Quarter: 2022Q1

REPORT INFORMATION
  Report Type: Report from Study
  Country: DE (occurrence: DE)
  Receive Date: 20211005
  Receipt Date: 20220214
  Transmission Date: 20220423
  Serious: Yes (Hospitalization)
  Sender: FDA-Public Use
  Company Number: DE-BRISTOL-MYERS SQUIBB COMPANY-BMS-2021-065810

PATIENT
  Age: 52 Year
  Sex: Female
  Weight: 63 kg

DRUGS (5)
  1. NIVOLUMAB [Suspect]
     Active Substance: NIVOLUMAB
     Indication: Nodular melanoma
     Dosage: 148 MILLILITER
     Route: 042
     Dates: start: 20201105
  2. CENTROVISION MAKULA OMEGA 3 [Concomitant]
     Indication: Product used for unknown indication
     Dosage: 1 DOSAGE FORM -2 UNIT NOS
     Route: 048
     Dates: start: 202001
  3. BIO KURKUMA [Concomitant]
     Indication: Prophylaxis
     Dosage: 1 DOSAGE FORM=2 UNIT NOS
     Route: 048
     Dates: start: 201908
  4. LEVOTHYROXINE SODIUM [Concomitant]
     Active Substance: LEVOTHYROXINE SODIUM
     Indication: Product used for unknown indication
     Dosage: 150 MICROGRAM
     Route: 048
     Dates: start: 20210618
  5. ENOXAPARIN SODIUM [Concomitant]
     Active Substance: ENOXAPARIN SODIUM
     Indication: Prophylaxis
     Dosage: 1 DOSAGE FORM=0.4 UNIT NOS
     Route: 058
     Dates: start: 20210706, end: 20210709

REACTIONS (1)
  - Protein deficiency [Recovered/Resolved]

NARRATIVE: CASE EVENT DATE: 20210706
